FAERS Safety Report 20198211 (Version 1)
Quarter: 2021Q4

REPORT INFORMATION
  Report Type: Spontaneous
  Country: US (occurrence: US)
  Receive Date: 20211217
  Receipt Date: 20211217
  Transmission Date: 20220304
  Serious: No
  Sender: FDA-Public Use
  Company Number: US-ELI_LILLY_AND_COMPANY-US202112004272

PATIENT

DRUGS (2)
  1. VERZENIO [Suspect]
     Active Substance: ABEMACICLIB
     Indication: Product used for unknown indication
     Dosage: UNK UNK, UNKNOWN
     Route: 048
     Dates: start: 202108
  2. METAMUCIL [Suspect]
     Active Substance: PLANTAGO SEED
     Indication: Diarrhoea
     Dosage: 4-5 DOSAGE FORM, BID
     Route: 065

REACTIONS (2)
  - Constipation [Unknown]
  - Diarrhoea [Recovered/Resolved]
